FAERS Safety Report 9818058 (Version 1)
Quarter: 2013Q4

REPORT INFORMATION
  Report Type: Spontaneous
  Country: US (occurrence: None)
  Receive Date: 20131223
  Receipt Date: 20131223
  Transmission Date: 20140711
  Serious: Yes (Other)
  Sender: FDA-Public Use
  Company Number: 219792

PATIENT
  Age: 56 Year
  Sex: Male

DRUGS (5)
  1. PICATO [Suspect]
     Indication: ACTINIC KERATOSIS
     Dosage: (1 IN 1 D), TOPICAL
     Route: 061
     Dates: start: 20121127, end: 20121129
  2. HYDROCODONE (HYDROCODONE) [Concomitant]
  3. EXFORGE (AMLODIPINE W/VALSARTAN) [Concomitant]
  4. ACIPHEX (RABEPRAZOLE SODIUM) [Concomitant]
  5. ADVIL (IBUPROFEN) [Concomitant]

REACTIONS (9)
  - Application site scab [None]
  - Application site exfoliation [None]
  - Erythema [None]
  - Application site pain [None]
  - Off label use [None]
  - Prescribed overdose [None]
  - Drug administered at inappropriate site [None]
  - Drug administration error [None]
  - Drug ineffective [None]
